FAERS Safety Report 8082630-1 (Version None)
Quarter: 2012Q1

REPORT INFORMATION
  Report Type: 
  Country: None (occurrence: None)
  Receive Date: 20120127
  Receipt Date: 20110224
  Transmission Date: 20120608
  Serious: No
  Sender: FDA-Public Use
  Company Number: US-ABBOTT-11P-163-0707332-00

PATIENT
  Age: 43 Year
  Sex: Male

DRUGS (4)
  1. SULFASALAZINE [Concomitant]
     Indication: COLITIS ULCERATIVE
     Dosage: 3 TABS TWICE A DAY
     Route: 048
  2. MULTI-VITAMINS [Concomitant]
     Indication: PRODUCT USED FOR UNKNOWN INDICATION
  3. HUMIRA [Suspect]
     Indication: COLITIS ULCERATIVE
     Dates: start: 20101101
  4. IRON [Concomitant]
     Indication: MINERAL SUPPLEMENTATION

REACTIONS (6)
  - COUGH [None]
  - THROAT IRRITATION [None]
  - HEADACHE [None]
  - INCREASED UPPER AIRWAY SECRETION [None]
  - PNEUMONIA [None]
  - ABNORMAL SENSATION IN EYE [None]
